FAERS Safety Report 12654130 (Version 2)
Quarter: 2016Q3

REPORT INFORMATION
  Report Type: Spontaneous
  Country: GB (occurrence: GB)
  Receive Date: 20160816
  Receipt Date: 20160819
  Transmission Date: 20161109
  Serious: Yes (Death, Other)
  Sender: FDA-Public Use
  Company Number: GB-ROCHE-1811674

PATIENT
  Age: 26 Year
  Sex: Female

DRUGS (4)
  1. TAXOL [Suspect]
     Active Substance: PACLITAXEL
     Indication: CERVIX CARCINOMA
     Route: 065
  2. AVASTIN [Suspect]
     Active Substance: BEVACIZUMAB
     Indication: CERVIX CARCINOMA
     Route: 065
  3. TOPOTECAN [Suspect]
     Active Substance: TOPOTECAN\TOPOTECAN HYDROCHLORIDE
     Indication: CERVIX CARCINOMA
     Dosage: DAY 1 TO 3
     Route: 065
  4. CARBOPLATIN. [Concomitant]
     Active Substance: CARBOPLATIN
     Dosage: AUC5
     Route: 065

REACTIONS (5)
  - Death [Fatal]
  - Metastases to bone [Unknown]
  - Bone marrow failure [Unknown]
  - General physical health deterioration [Unknown]
  - Drug hypersensitivity [Unknown]
